FAERS Safety Report 5030225-6 (Version None)
Quarter: 2006Q2

REPORT INFORMATION
  Report Type: 
  Country: None (occurrence: None)
  Receive Date: 20060614
  Receipt Date: 20060526
  Transmission Date: 20061013
  Serious: Yes (Hospitalization)
  Sender: FDA-Public Use
  Company Number: US200605001077

PATIENT
  Age: 75 Year
  Sex: Male

DRUGS (14)
  1. FORTEO [Suspect]
     Indication: OSTEOPOROSIS
     Dosage: 20 UG
     Dates: start: 20051201
  2. FORTEO [Concomitant]
  3. AVANDIA [Concomitant]
  4. FERROUS SULFATE TAB [Concomitant]
  5. PROTONIX [Concomitant]
  6. COMBIVENT [Concomitant]
  7. LOPRESSOR [Concomitant]
  8. OSCAL (CALCIUM CARBONATE) [Concomitant]
  9. ZOCOR [Concomitant]
  10. ALTACE [Concomitant]
  11. ASA (ASPIRIN (ACETYLSALICYLIC ACID) [Concomitant]
  12. ALLEGRA [Concomitant]
  13. ADALAT [Concomitant]
  14. THORAZINE [Concomitant]

REACTIONS (2)
  - FALL [None]
  - HIP FRACTURE [None]
